FAERS Safety Report 4445553-2 (Version None)
Quarter: 2004Q3

REPORT INFORMATION
  Report Type: 
  Country: None (occurrence: None)
  Receive Date: 20040804
  Receipt Date: 20030828
  Transmission Date: 20050211
  Serious: Yes (Other)
  Sender: FDA-Public Use
  Company Number: 202258

PATIENT
  Age: 53 Year
  Sex: Female
  Weight: 65 kg

DRUGS (2)
  1. HERCEPTIN [Suspect]
     Indication: BREAST CANCER METASTATIC
     Dosage: 4 MG/KG, INTRAVENOUS
     Route: 042
     Dates: start: 20030827
  2. VINORELBINE (VINORELBINE) [Concomitant]

REACTIONS (1)
  - HYPERSENSITIVITY [None]
